FAERS Safety Report 6082899-9 (Version None)
Quarter: 2009Q1

REPORT INFORMATION
  Report Type: 
  Country: None (occurrence: None)
  Receive Date: 20090218
  Receipt Date: 20090213
  Transmission Date: 20090719
  Serious: Yes (Death, Hospitalization)
  Sender: FDA-Public Use
  Company Number: US-CELGENEUS-163-21880-08121254

PATIENT
  Age: 54 Year
  Sex: Male
  Weight: 121.67 kg

DRUGS (36)
  1. REVLIMID [Suspect]
     Indication: LYMPHOMA
     Route: 048
     Dates: start: 20081204, end: 20081209
  2. SODIUM CHLORIDE [Concomitant]
     Indication: DRUG USE FOR UNKNOWN INDICATION
     Route: 051
     Dates: start: 20081210, end: 20081216
  3. SODIUM CHLORIDE [Concomitant]
     Route: 051
     Dates: start: 20081210, end: 20081211
  4. OCTREOTIDE ACETATE [Concomitant]
     Indication: DRUG USE FOR UNKNOWN INDICATION
     Route: 051
     Dates: start: 20081213, end: 20081215
  5. OCTREOTIDE ACETATE [Concomitant]
     Route: 058
     Dates: start: 20081213, end: 20081214
  6. OCTREOTIDE ACETATE [Concomitant]
     Route: 058
     Dates: start: 20081213, end: 20081213
  7. FLUCONAZOLE [Concomitant]
     Indication: DRUG USE FOR UNKNOWN INDICATION
     Route: 051
     Dates: start: 20081215, end: 20081215
  8. FLUCONAZOLE [Concomitant]
     Route: 051
     Dates: start: 20081210, end: 20081211
  9. PIPERACILLIN AND TAZOBACTAM [Concomitant]
     Indication: DRUG USE FOR UNKNOWN INDICATION
     Route: 051
     Dates: start: 20081215, end: 20081215
  10. VANCOMYCIN HCL [Concomitant]
     Indication: DRUG USE FOR UNKNOWN INDICATION
     Route: 051
     Dates: start: 20081215, end: 20081216
  11. ALBUTEROL [Concomitant]
     Indication: DRUG USE FOR UNKNOWN INDICATION
     Route: 055
     Dates: start: 20081210, end: 20081216
  12. ENOXAPARIN SODIUM [Concomitant]
     Indication: DRUG USE FOR UNKNOWN INDICATION
     Route: 058
     Dates: start: 20081213, end: 20081213
  13. FUROSEMIDE [Concomitant]
     Indication: DRUG USE FOR UNKNOWN INDICATION
     Route: 051
     Dates: start: 20081216, end: 20081218
  14. FUROSEMIDE [Concomitant]
     Route: 051
     Dates: start: 20081216, end: 20081216
  15. HYDROCODONE BITARTRATE + ACETAMINOPHEN [Concomitant]
     Indication: DRUG USE FOR UNKNOWN INDICATION
     Dosage: 10/325
     Route: 065
     Dates: start: 20081210, end: 20081216
  16. INSULIN REGULAR [Concomitant]
     Indication: DRUG USE FOR UNKNOWN INDICATION
     Route: 058
  17. IPRATROPIUM BROMIDE [Concomitant]
     Indication: DRUG USE FOR UNKNOWN INDICATION
     Route: 055
     Dates: start: 20081210, end: 20081216
  18. LACTULOSE [Concomitant]
     Indication: DRUG USE FOR UNKNOWN INDICATION
     Route: 048
     Dates: start: 20081210, end: 20081211
  19. LACTULOSE [Concomitant]
     Route: 048
     Dates: start: 20081211, end: 20081216
  20. LORAZEPAM [Concomitant]
     Indication: DRUG USE FOR UNKNOWN INDICATION
     Route: 051
     Dates: start: 20081213, end: 20081214
  21. LORAZEPAM [Concomitant]
     Route: 051
     Dates: start: 20081215, end: 20081216
  22. LORAZEPAM [Concomitant]
     Route: 051
     Dates: start: 20081214, end: 20081215
  23. MAGNESIUM OXIDE [Concomitant]
     Indication: DRUG USE FOR UNKNOWN INDICATION
     Route: 048
     Dates: start: 20081210, end: 20081210
  24. METOPROLOL TARTRATE [Concomitant]
     Indication: DRUG USE FOR UNKNOWN INDICATION
     Route: 048
     Dates: start: 20081210, end: 20081210
  25. MIDAZOLAM HCL [Concomitant]
     Indication: DRUG USE FOR UNKNOWN INDICATION
     Route: 051
     Dates: start: 20081210, end: 20081213
  26. NITROGLYCERIN [Concomitant]
     Indication: DRUG USE FOR UNKNOWN INDICATION
     Route: 061
  27. PANTOPRAZOLE [Concomitant]
     Indication: DRUG USE FOR UNKNOWN INDICATION
     Route: 048
     Dates: start: 20081213, end: 20081215
  28. PANTOPRAZOLE [Concomitant]
     Route: 051
     Dates: start: 20081213, end: 20081216
  29. PROPOFOL [Concomitant]
     Indication: DRUG USE FOR UNKNOWN INDICATION
     Route: 065
  30. PROPRANOLOL HYDROCHLORIDE [Concomitant]
     Indication: DRUG USE FOR UNKNOWN INDICATION
     Route: 048
     Dates: start: 20081213, end: 20081215
  31. SODIUM CHLORIDE [Concomitant]
     Indication: DRUG USE FOR UNKNOWN INDICATION
     Route: 051
     Dates: start: 20081210, end: 20081210
  32. PHYTONADIONE [Concomitant]
     Indication: DRUG USE FOR UNKNOWN INDICATION
     Route: 058
     Dates: start: 20081211, end: 20081212
  33. SUCRALFATE [Concomitant]
     Indication: DRUG USE FOR UNKNOWN INDICATION
     Route: 048
     Dates: start: 20081213, end: 20081215
  34. DEXTROSE [Concomitant]
     Indication: DRUG USE FOR UNKNOWN INDICATION
     Route: 051
     Dates: start: 20081210, end: 20081216
  35. FENTANYL [Concomitant]
     Indication: DRUG USE FOR UNKNOWN INDICATION
     Route: 051
     Dates: start: 20081211, end: 20081216
  36. ONDANSETRON [Concomitant]
     Indication: DRUG USE FOR UNKNOWN INDICATION
     Route: 051
     Dates: start: 20081210, end: 20081216

REACTIONS (3)
  - HEPATIC FAILURE [None]
  - RENAL FAILURE ACUTE [None]
  - VENTRICULAR ARRHYTHMIA [None]
